FAERS Safety Report 20496308 (Version 2)
Quarter: 2022Q1

REPORT INFORMATION
  Report Type: Spontaneous
  Country: IN (occurrence: IN)
  Receive Date: 20220221
  Receipt Date: 20220330
  Transmission Date: 20220423
  Serious: Yes (Other)
  Sender: FDA-Public Use
  Company Number: IN-PFIZER INC-202200239725

PATIENT
  Age: 69 Year
  Sex: Female

DRUGS (6)
  1. PALBOCICLIB [Suspect]
     Active Substance: PALBOCICLIB
     Indication: Breast cancer metastatic
     Dosage: UNK
     Route: 048
     Dates: start: 2020
  2. PALBOCICLIB [Suspect]
     Active Substance: PALBOCICLIB
     Dosage: 100 MG, CYCLIC (ONCE DAILY WITH FOOD 21 DAYS ON 7 DAYS OFF)
     Route: 048
  3. PALBOCICLIB [Suspect]
     Active Substance: PALBOCICLIB
     Dosage: 100 MG
     Route: 048
     Dates: start: 20211124, end: 20220304
  4. FULVESTRANT [Concomitant]
     Active Substance: FULVESTRANT
     Indication: Breast cancer metastatic
     Dosage: UNK MG
  5. ZOLEDRONIC ACID [Concomitant]
     Active Substance: ZOLEDRONIC ACID
     Indication: Breast cancer metastatic
     Dosage: UNK
  6. GABAPIN NT [Concomitant]
     Dosage: TAB GABAPIN NT (400/10) ONCE AT BED TIME

REACTIONS (15)
  - Altered state of consciousness [Recovered/Resolved]
  - Blood pressure increased [Unknown]
  - Type 2 diabetes mellitus [Unknown]
  - Back pain [Unknown]
  - Vomiting [Recovered/Resolved]
  - Heart rate decreased [Unknown]
  - Weight increased [Unknown]
  - Neoplasm progression [Unknown]
  - Total lung capacity increased [Unknown]
  - Aspartate aminotransferase increased [Unknown]
  - Gamma-glutamyltransferase increased [Unknown]
  - Blood alkaline phosphatase increased [Unknown]
  - Liver function test abnormal [Recovering/Resolving]
  - Full blood count decreased [Unknown]
  - Pruritus [Unknown]

NARRATIVE: CASE EVENT DATE: 20200101
